FAERS Safety Report 4692907-5 (Version None)
Quarter: 2005Q2

REPORT INFORMATION
  Report Type: 
  Country: None (occurrence: None)
  Receive Date: 20050617
  Receipt Date: 20050428
  Transmission Date: 20051028
  Serious: Yes (Hospitalization)
  Sender: FDA-Public Use
  Company Number: US-BOEHRINGER INGELHEIM PHARMACEUTICALS, INC.-2005-BP-07177BP

PATIENT
  Age: 70 Year
  Sex: Female

DRUGS (5)
  1. SPIRIVA [Suspect]
     Indication: CHRONIC OBSTRUCTIVE PULMONARY DISEASE
     Route: 055
     Dates: start: 20050427, end: 20050428
  2. LIPITOR [Concomitant]
  3. CELEBREX [Concomitant]
  4. HYDROCODONE BITARTRATE [Concomitant]
  5. PREDNISONE TAB [Concomitant]

REACTIONS (3)
  - DYSPNOEA [None]
  - FEELING ABNORMAL [None]
  - RESPIRATORY FAILURE [None]
